FAERS Safety Report 5622980-9 (Version None)
Quarter: 2008Q1

REPORT INFORMATION
  Report Type: 
  Country: None (occurrence: None)
  Receive Date: 20080212
  Receipt Date: 20070410
  Transmission Date: 20080703
  Serious: Yes (Other)
  Sender: FDA-Public Use
  Company Number: US-ASTRAZENECA-2007UW02065

PATIENT
  Age: 40 Year
  Sex: Male
  Weight: 80.5 kg

DRUGS (3)
  1. SEROQUEL [Suspect]
     Indication: MAJOR DEPRESSION
     Dosage: 25 MG - 125 MG
     Route: 048
     Dates: start: 19990301
  2. SEROQUEL [Suspect]
     Indication: PAIN
     Dosage: 25 MG - 125 MG
     Route: 048
     Dates: start: 19990301
  3. LITHIUM CARBONATE [Concomitant]
     Route: 048
     Dates: start: 20040301, end: 20060601

REACTIONS (12)
  - ABDOMINAL DISTENSION [None]
  - BLOOD CHOLESTEROL INCREASED [None]
  - BLOOD TRIGLYCERIDES INCREASED [None]
  - CHEST PAIN [None]
  - CONSTIPATION [None]
  - EXOSTOSIS [None]
  - INTERVERTEBRAL DISC PROTRUSION [None]
  - NEPHROLITHIASIS [None]
  - RECTAL FISTULA REPAIR [None]
  - SKIN NEOPLASM BLEEDING [None]
  - TYPE 2 DIABETES MELLITUS [None]
  - WEIGHT INCREASED [None]
